FAERS Safety Report 10046880 (Version 1)
Quarter: 2014Q1

REPORT INFORMATION
  Report Type: Spontaneous
  Country: FR (occurrence: FR)
  Receive Date: 20140331
  Receipt Date: 20140331
  Transmission Date: 20141002
  Serious: Yes (Other)
  Sender: FDA-Public Use
  Company Number: PHHY2014FR037722

PATIENT
  Sex: 0

DRUGS (2)
  1. GILENYA [Suspect]
     Route: 048
  2. AVLOCARDYL [Concomitant]

REACTIONS (1)
  - Chorioretinitis [Unknown]
